FAERS Safety Report 23084692 (Version 2)
Quarter: 2023Q4

REPORT INFORMATION
  Report Type: Report from Study
  Country: US (occurrence: US)
  Receive Date: 20231019
  Receipt Date: 20231120
  Transmission Date: 20240109
  Serious: Yes (Hospitalization)
  Sender: FDA-Public Use
  Company Number: US-PFIZER INC-PV202300170227

PATIENT
  Age: 62 Year
  Sex: Male
  Weight: 85.6 kg

DRUGS (16)
  1. INVESTIGATIONAL PRODUCT [Suspect]
     Active Substance: INVESTIGATIONAL PRODUCT
     Indication: Primary amyloidosis
     Dosage: UNK
     Dates: start: 20230912, end: 20230912
  2. BORTEZOMIB [Concomitant]
     Active Substance: BORTEZOMIB
     Dosage: LYOPHILIZED POWDER
     Dates: start: 20230912
  3. DARATUMUMAB [Concomitant]
     Active Substance: DARATUMUMAB
     Dosage: UNK
     Dates: start: 20230912
  4. CYCLOPHOSPHAMIDE [Concomitant]
     Active Substance: CYCLOPHOSPHAMIDE
     Dosage: UNK
     Dates: start: 20230912
  5. DEXAMETHASONE [Concomitant]
     Active Substance: DEXAMETHASONE
     Dosage: UNK
     Dates: start: 20230912
  6. FUROSEMIDE [Concomitant]
     Active Substance: FUROSEMIDE
  7. SPIRONOLACTONE [Concomitant]
     Active Substance: SPIRONOLACTONE
  8. ZETIA [Concomitant]
     Active Substance: EZETIMIBE
  9. ACYCLOVIR [Concomitant]
     Active Substance: ACYCLOVIR
  10. BACTRIM [Concomitant]
     Active Substance: SULFAMETHOXAZOLE\TRIMETHOPRIM
  11. XARELTO [Concomitant]
     Active Substance: RIVAROXABAN
  12. AMIODARONE [Concomitant]
     Active Substance: AMIODARONE
  13. OMEPRAZOLE [Concomitant]
     Active Substance: OMEPRAZOLE
  14. PROCHLORPERAZINE [Concomitant]
     Active Substance: PROCHLORPERAZINE
  15. SENNOSIDES A AND B [Concomitant]
     Active Substance: SENNOSIDES A AND B
  16. TORSEMIDE [Concomitant]
     Active Substance: TORSEMIDE

REACTIONS (1)
  - Ventricular tachycardia [Recovered/Resolved]

NARRATIVE: CASE EVENT DATE: 20230929
